FAERS Safety Report 8605088-X (Version None)
Quarter: 2012Q3

REPORT INFORMATION
  Report Type: 
  Country: None (occurrence: None)
  Receive Date: 20120820
  Receipt Date: 20120814
  Transmission Date: 20120928
  Serious: Yes (Other)
  Sender: FDA-Public Use
  Company Number: US-AMGEN-USASP2012049599

PATIENT
  Age: 82 Year
  Sex: Female
  Weight: 41.361 kg

DRUGS (21)
  1. IMDUR [Concomitant]
  2. NEXIUM [Concomitant]
  3. MAGNESIUM OXIDE [Concomitant]
  4. IVIGLOB-EX [Concomitant]
     Indication: THERAPEUTIC RESPONSE DECREASED
     Dosage: UNK
     Dates: start: 20120807
  5. IVIGLOB-EX [Concomitant]
     Dosage: UNK
     Dates: start: 20120807
  6. BONIVA [Concomitant]
  7. ASPIRIN [Concomitant]
  8. NPLATE [Suspect]
     Indication: IDIOPATHIC THROMBOCYTOPENIC PURPURA
     Dosage: 4 MUG/KG, QWK
     Route: 058
     Dates: start: 20111115
  9. VITAMIN D [Concomitant]
  10. CALCIUM CARBONATE [Concomitant]
  11. RITUXAN [Concomitant]
     Indication: IDIOPATHIC THROMBOCYTOPENIC PURPURA
     Dosage: UNK
     Dates: start: 20111018
  12. METOPROLOL TARTRATE [Concomitant]
  13. RITUXAN [Concomitant]
     Dosage: UNK
     Dates: start: 20111101
  14. RITUXAN [Concomitant]
     Dosage: UNK
     Dates: start: 20111108
  15. RITUXAN [Concomitant]
     Dosage: UNK
     Dates: start: 20120809
  16. IVIGLOB-EX [Concomitant]
     Dosage: UNK
     Dates: start: 20120808
  17. CAPOTEN [Concomitant]
  18. LIPITOR [Concomitant]
  19. NPLATE [Suspect]
     Dosage: 168 MUG, QWK
     Route: 058
     Dates: end: 20120807
  20. RITUXAN [Concomitant]
     Dosage: UNK
     Dates: start: 20120809
  21. IVIGLOB-EX [Concomitant]
     Indication: IDIOPATHIC THROMBOCYTOPENIC PURPURA
     Dosage: UNK
     Dates: start: 20110215

REACTIONS (2)
  - THROMBOCYTOPENIA [None]
  - THERAPEUTIC RESPONSE DECREASED [None]
